FAERS Safety Report 4542146-3 (Version None)
Quarter: 2004Q4

REPORT INFORMATION
  Report Type: 
  Country: None (occurrence: None)
  Receive Date: 20041227
  Receipt Date: 20041213
  Transmission Date: 20050328
  Serious: Yes (Other)
  Sender: FDA-Public Use
  Company Number: S04-USA-07915-01

PATIENT
  Age: 83 Year
  Sex: Male

DRUGS (10)
  1. NAMENDA [Suspect]
     Indication: DISTURBANCE IN ATTENTION
     Dosage: 5 MG QD PO
     Route: 048
     Dates: start: 20041101, end: 20041107
  2. NAMENDA [Suspect]
     Indication: MEMORY IMPAIRMENT
     Dosage: 5 MG QD PO
     Route: 048
     Dates: start: 20041101, end: 20041107
  3. NAMENDA [Suspect]
     Indication: DISTURBANCE IN ATTENTION
     Dosage: 5 MG BID PO
     Route: 048
     Dates: start: 20041108, end: 20041114
  4. NAMENDA [Suspect]
     Indication: MEMORY IMPAIRMENT
     Dosage: 5 MG BID PO
     Route: 048
     Dates: start: 20041108, end: 20041114
  5. NAMENDA [Suspect]
     Indication: DISTURBANCE IN ATTENTION
     Dosage: 15 MG QD PO
     Route: 048
     Dates: start: 20041115, end: 20041121
  6. NAMENDA [Suspect]
     Indication: MEMORY IMPAIRMENT
     Dosage: 15 MG QD PO
     Route: 048
     Dates: start: 20041115, end: 20041121
  7. NAMENDA [Suspect]
     Indication: DISTURBANCE IN ATTENTION
     Dosage: 10 MG BID PO
     Route: 048
     Dates: start: 20041122, end: 20041213
  8. NAMENDA [Suspect]
     Indication: MEMORY IMPAIRMENT
     Dosage: 10 MG BID PO
     Route: 048
     Dates: start: 20041122, end: 20041213
  9. ARICEPT [Concomitant]
  10. PROCRIT (ERYTHROPOIETIN) [Concomitant]

REACTIONS (2)
  - CELLULITIS [None]
  - THROMBOPHLEBITIS SUPERFICIAL [None]
